FAERS Safety Report 17350811 (Version 1)
Quarter: 2020Q1

REPORT INFORMATION
  Report Type: Spontaneous
  Country: US (occurrence: US)
  Receive Date: 20200130
  Receipt Date: 20200130
  Transmission Date: 20200409
  Serious: No
  Sender: FDA-Public Use
  Company Number: US-BRISTOL-MYERS SQUIBB COMPANY-BMS-2020-006770

PATIENT
  Sex: Male
  Weight: 110 kg

DRUGS (2)
  1. YERVOY [Suspect]
     Active Substance: IPILIMUMAB
     Indication: SQUAMOUS CELL CARCINOMA OF HEAD AND NECK
     Dosage: 100 MILLIGRAM, Q3WK
     Route: 042
     Dates: start: 20190701, end: 20191003
  2. OPDIVO [Suspect]
     Active Substance: NIVOLUMAB
     Indication: SQUAMOUS CELL CARCINOMA OF HEAD AND NECK
     Dosage: 300 MILLIGRAM, Q3WK
     Route: 042
     Dates: start: 20190701, end: 20191003

REACTIONS (2)
  - Intentional product use issue [Unknown]
  - Adverse event [Unknown]
